FAERS Safety Report 13351777 (Version 1)
Quarter: 2017Q1

REPORT INFORMATION
  Report Type: Spontaneous
  Country: FR (occurrence: FR)
  Receive Date: 20170320
  Receipt Date: 20170320
  Transmission Date: 20170429
  Serious: Yes (Hospitalization, Other)
  Sender: FDA-Public Use
  Company Number: FR-PFIZER INC-2017109981

PATIENT
  Age: 53 Year
  Sex: Female

DRUGS (9)
  1. SOLIAN [Suspect]
     Active Substance: AMISULPRIDE
     Dosage: 100 MG, 1X/DAY
     Route: 048
  2. XANAX [Suspect]
     Active Substance: ALPRAZOLAM
     Dosage: 1/2-1/2-1/2-2
     Route: 048
  3. SEROPLEX [Suspect]
     Active Substance: ESCITALOPRAM OXALATE
     Dosage: UNK, SINGLE
     Route: 048
     Dates: start: 20161006, end: 20161006
  4. NOZINAN [Suspect]
     Active Substance: LEVOMEPROMAZINE
     Dosage: UNK, SINGLE
     Route: 048
     Dates: start: 20161006, end: 20161006
  5. ENBREL [Concomitant]
     Active Substance: ETANERCEPT
     Dosage: ONE INJECTION WEEKLY
  6. NOZINAN [Suspect]
     Active Substance: LEVOMEPROMAZINE
     Dosage: BETWEEN 0.5 AND 1 DOSAGE FORM IN THE EVENING
     Route: 048
  7. SOLIAN [Suspect]
     Active Substance: AMISULPRIDE
     Dosage: UNK, SINGLE
     Route: 048
     Dates: start: 20161006, end: 20161006
  8. XANAX [Suspect]
     Active Substance: ALPRAZOLAM
     Dosage: UNK, SINGLE
     Route: 048
     Dates: start: 20161006, end: 20161006
  9. SEROPLEX [Suspect]
     Active Substance: ESCITALOPRAM OXALATE
     Dosage: 20 MG, UNK
     Route: 048

REACTIONS (5)
  - Somnolence [Recovered/Resolved]
  - Suicide attempt [Unknown]
  - Coma scale abnormal [Recovered/Resolved]
  - Toxicity to various agents [Recovered/Resolved]
  - Sinus tachycardia [Recovered/Resolved]

NARRATIVE: CASE EVENT DATE: 20161006
